FAERS Safety Report 7232726-9 (Version None)
Quarter: 2011Q1

REPORT INFORMATION
  Report Type: 
  Country: None (occurrence: None)
  Receive Date: 20110119
  Receipt Date: 20110112
  Transmission Date: 20110831
  Serious: Yes (Hospitalization)
  Sender: FDA-Public Use
  Company Number: CH-PFIZER INC-2011007443

PATIENT
  Age: 55 Year
  Sex: Female

DRUGS (11)
  1. JANUVIA [Suspect]
     Dosage: 100 MG, 1X/DAY
     Route: 048
     Dates: start: 20100901
  2. TRIMIPRAMINE [Suspect]
     Dosage: 200 MG, 1X/DAY
     Route: 048
  3. ELTROXIN [Concomitant]
     Dosage: 0.1 MG, 1X/DAY
     Route: 048
  4. NOCTAMIDE [Suspect]
     Dosage: 4 MG, 1X/DAY
     Route: 048
  5. CALCIMAGON-D3 [Concomitant]
     Dosage: 1250MG / 4MG, 1X/DAY
     Route: 048
  6. AMARYL [Suspect]
     Dosage: 4 MG, 1X/DAY
     Route: 048
  7. METFIN [Suspect]
     Dosage: 850 MG, 3X/DAY
     Route: 048
  8. LIMBITROL [Suspect]
     Dosage: 12.5MG / 5MG, 3X/DAY
     Route: 048
  9. DAFALGAN [Suspect]
     Indication: PYREXIA
     Dosage: 1 G, 3X/DAY
     Route: 048
     Dates: start: 20101203, end: 20101205
  10. NEXIUM [Concomitant]
     Dosage: 40 MG, 1X/DAY
  11. SORTIS [Suspect]
     Dosage: 40 MG, 1X/DAY
     Route: 048

REACTIONS (1)
  - HEPATOCELLULAR INJURY [None]
